FAERS Safety Report 6580206-6 (Version None)
Quarter: 2010Q1

REPORT INFORMATION
  Report Type: 
  Country: None (occurrence: None)
  Receive Date: 20100212
  Receipt Date: 20100204
  Transmission Date: 20100710
  Serious: Yes (Death)
  Sender: FDA-Public Use
  Company Number: US-AMGEN-QUU390685

PATIENT
  Sex: Female

DRUGS (2)
  1. NPLATE [Suspect]
     Indication: IDIOPATHIC THROMBOCYTOPENIC PURPURA
     Dates: start: 20100105, end: 20100201
  2. CORTICOSTEROIDS [Concomitant]
     Dates: start: 19950301

REACTIONS (1)
  - GASTROINTESTINAL HAEMORRHAGE [None]
